FAERS Safety Report 10675023 (Version 1)
Quarter: 2014Q4

REPORT INFORMATION
  Report Type: Spontaneous
  Country: US (occurrence: US)
  Receive Date: 20141224
  Receipt Date: 20141224
  Transmission Date: 20150529
  Serious: Yes (Life-Threatening, Hospitalization, Other)
  Sender: FDA-Public Use
  Company Number: US-009507513-1412USA008545

PATIENT
  Sex: Male

DRUGS (2)
  1. ZOCOR [Suspect]
     Active Substance: SIMVASTATIN
     Dosage: 80 MG, DAILY
     Route: 048
  2. DACTINOMYCIN [Concomitant]
     Active Substance: DACTINOMYCIN

REACTIONS (4)
  - Cardiac failure congestive [Unknown]
  - Blood creatine decreased [Recovering/Resolving]
  - Renal failure [Unknown]
  - Dyspnoea [Unknown]

NARRATIVE: CASE EVENT DATE: 2014
